FAERS Safety Report 7641897-1 (Version None)
Quarter: 2011Q3

REPORT INFORMATION
  Report Type: 
  Country: None (occurrence: None)
  Receive Date: 20110728
  Receipt Date: 20110718
  Transmission Date: 20111222
  Serious: Yes (Hospitalization, Other)
  Sender: FDA-Public Use
  Company Number: US-UCBSA-007631

PATIENT
  Sex: Female

DRUGS (5)
  1. FOLIC ACID [Concomitant]
     Indication: PREGNANCY
     Route: 048
  2. FERROUS SULFATE TAB [Concomitant]
     Indication: BLOOD IRON DECREASED
     Route: 048
     Dates: start: 20091106
  3. PRENATAL VITAMINS [Concomitant]
     Indication: PREGNANCY
     Route: 048
  4. KEPPRA [Suspect]
     Indication: EPILEPSY
     Dosage: 1000 DAILY DOSE
     Dates: end: 20091101
  5. KEPPRA XR [Suspect]
     Indication: EPILEPSY
     Dates: start: 20091101

REACTIONS (4)
  - GESTATIONAL HYPERTENSION [None]
  - CAESAREAN SECTION [None]
  - PREGNANCY [None]
  - BLOOD IRON DECREASED [None]
